FAERS Safety Report 25141149 (Version 1)
Quarter: 2025Q1

REPORT INFORMATION
  Report Type: Spontaneous
  Country: US (occurrence: US)
  Receive Date: 20250331
  Receipt Date: 20250331
  Transmission Date: 20250408
  Serious: Yes (Hospitalization)
  Sender: ELI LILLY AND COMPANY
  Company Number: US-ELI_LILLY_AND_COMPANY-US202503017716

PATIENT
  Age: 59 Year
  Sex: Male

DRUGS (1)
  1. ADCIRCA [Suspect]
     Active Substance: TADALAFIL
     Indication: Product used for unknown indication
     Dosage: 2 DOSAGE FORM, DAILY (TWO TABLETS OF 20 MG DAILY)
     Route: 065
     Dates: start: 2011

REACTIONS (1)
  - Wound infection [Unknown]
